FAERS Safety Report 8315568-2 (Version None)
Quarter: 2012Q2

REPORT INFORMATION
  Report Type: 
  Country: None (occurrence: None)
  Receive Date: 20120426
  Receipt Date: 20120419
  Transmission Date: 20120825
  Serious: Yes (Other)
  Sender: FDA-Public Use
  Company Number: DE-FRI-1000029572

PATIENT
  Age: 64 Year
  Sex: Male

DRUGS (14)
  1. TORSEMIDE [Concomitant]
  2. RAMIPRIL [Concomitant]
  3. PREDNISOLONE [Concomitant]
  4. METFORMIN HCL [Concomitant]
  5. FENTANYL [Suspect]
     Route: 062
  6. CYCLOSPORINE [Suspect]
  7. INSULIN [Concomitant]
  8. HYDROCHLOROTHIAZIDE [Concomitant]
  9. CITALOPRAM HYDROBROMIDE [Suspect]
     Dosage: 10 MG
     Route: 048
  10. CITALOPRAM HYDROBROMIDE [Suspect]
     Dosage: 20 MG
     Route: 048
  11. AMITRIPTYLINE HCL [Suspect]
  12. PANTOPRAZOLE [Concomitant]
  13. CARBIMAZOL [Concomitant]
  14. IBUPROFEN [Concomitant]

REACTIONS (2)
  - SEROTONIN SYNDROME [None]
  - DRUG INTERACTION [None]
